FAERS Safety Report 4881466-X (Version None)
Quarter: 2005Q4

REPORT INFORMATION
  Report Type: 
  Country: None (occurrence: None)
  Receive Date: 20051201
  Receipt Date: 20050727
  Transmission Date: 20060501
  Serious: No
  Sender: FDA-Public Use
  Company Number: 2005PV000646

PATIENT
  Age: 59 Year
  Sex: Male
  Weight: 117.9352 kg

DRUGS (20)
  1. BYETTA [Suspect]
     Indication: DIABETES MELLITUS NON-INSULIN-DEPENDENT
     Dosage: 5 MCG;BID;SC
     Route: 058
     Dates: start: 20050722, end: 20050723
  2. BYETTA [Suspect]
     Indication: DIABETES MELLITUS NON-INSULIN-DEPENDENT
     Dosage: 5 MCG;BID;SC
     Route: 058
     Dates: start: 20050727
  3. DYNACIRC [Concomitant]
  4. METOPROLOL [Concomitant]
  5. TRIAMTERENE AND HYDROCHLOROTHIAZIDE [Concomitant]
  6. GEMFIBROZIL [Concomitant]
  7. OMEPRAZOLE [Concomitant]
  8. POTASSIUM CHLORIDE [Concomitant]
  9. LISINOPRIL [Concomitant]
  10. ROSIGLITAZONE [Concomitant]
  11. BUSPIRONE [Concomitant]
  12. COMBIVENT [Concomitant]
  13. AEROBID [Concomitant]
  14. LORATADINE [Concomitant]
  15. IBUPROFEN [Concomitant]
  16. VITAMIN B W/ZINC/ [Concomitant]
  17. VITAMIN E [Concomitant]
  18. ESTER-C [Concomitant]
  19. FISH OIL [Concomitant]
  20. HUMALOG MIX [Concomitant]

REACTIONS (4)
  - BLOOD PRESSURE INCREASED [None]
  - DYSPEPSIA [None]
  - ENERGY INCREASED [None]
  - THERAPEUTIC RESPONSE UNEXPECTED [None]
